FAERS Safety Report 13987476 (Version 1)
Quarter: 2017Q3

REPORT INFORMATION
  Report Type: Spontaneous
  Country: US (occurrence: US)
  Receive Date: 20170919
  Receipt Date: 20170919
  Transmission Date: 20171128
  Serious: Yes (Other)
  Sender: FDA-Public Use
  Company Number: US-SUCAMPO PHARMACEUTICALS INC.-SPI201701076

PATIENT

DRUGS (24)
  1. TAMULOSIN [Concomitant]
     Active Substance: TAMSULOSIN
     Dosage: 0.4 MG, UNK
  2. CICLOPIROX. [Concomitant]
     Active Substance: CICLOPIROX
     Dosage: 8%
     Route: 061
  3. METAMUCIL [Concomitant]
     Active Substance: PLANTAGO SEED
     Dosage: UNK
  4. MIRALAX [Concomitant]
     Active Substance: POLYETHYLENE GLYCOL 3350
     Dosage: 17 G, AT BEDTIME
     Route: 048
     Dates: start: 20160531
  5. POLYETHYLENE GLYCOL [Concomitant]
     Active Substance: POLYETHYLENE GLYCOLS
     Dosage: 1 GRAM AS DIRECTED
  6. AMITIZA [Suspect]
     Active Substance: LUBIPROSTONE
     Dosage: 24 MCG, BID
     Route: 048
     Dates: start: 20160531
  7. LINZESS [Concomitant]
     Active Substance: LINACLOTIDE
     Dosage: 145 MCG, AS DIRECTED
     Route: 048
     Dates: start: 20130312
  8. NEXIUM [Concomitant]
     Active Substance: ESOMEPRAZOLE MAGNESIUM
     Dosage: 40 MG, QD
     Route: 048
     Dates: start: 20141114
  9. LINZESS [Concomitant]
     Active Substance: LINACLOTIDE
     Dosage: 145 MCG, QD
     Route: 048
     Dates: start: 20130906
  10. AMITIZA [Suspect]
     Active Substance: LUBIPROSTONE
     Indication: CONSTIPATION
     Dosage: 24 MCG, QD
     Dates: start: 20130429
  11. AMITIZA [Suspect]
     Active Substance: LUBIPROSTONE
     Dosage: UNK
     Dates: start: 20160831
  12. LINZESS [Concomitant]
     Active Substance: LINACLOTIDE
     Dosage: 290 MCG, QD
     Route: 048
     Dates: start: 20150220
  13. ZYLET [Concomitant]
     Active Substance: LOTEPREDNOL ETABONATE\TOBRAMYCIN
     Dosage: 0.3% - 0.5%
  14. AMITIZA [Suspect]
     Active Substance: LUBIPROSTONE
     Dosage: UNK
     Dates: start: 20160919
  15. AMITIZA [Suspect]
     Active Substance: LUBIPROSTONE
     Dosage: 24 MCG, BID
     Route: 048
     Dates: start: 20140829
  16. NEXIUM [Concomitant]
     Active Substance: ESOMEPRAZOLE MAGNESIUM
     Dosage: 40 MG, QD
     Route: 048
     Dates: start: 20150220
  17. MOVIPREP [Concomitant]
     Active Substance: ASCORBIC ACID\POLYETHYLENE GLYCOL 3350\POTASSIUM CHLORIDE\SODIUM ASCORBATE\SODIUM CHLORIDE\SODIUM SULFATE
     Dosage: 30 ML BY MOUTH AS DIRECTED
     Route: 048
     Dates: start: 20160830
  18. UNKNOWN [Concomitant]
     Active Substance: UNSPECIFIED INGREDIENT
     Dosage: 5 MG, 4 TABLETS AS DIRECTED
     Route: 048
     Dates: start: 20160830
  19. ASTEPRO [Concomitant]
     Active Substance: AZELASTINE HYDROCHLORIDE
     Dosage: 0.15%
     Route: 045
  20. AMMONIUM LACTATE. [Concomitant]
     Active Substance: AMMONIUM LACTATE
     Dosage: 12%
     Route: 061
  21. LINZESS [Concomitant]
     Active Substance: LINACLOTIDE
     Dosage: 145 MCG, QD
     Route: 048
     Dates: start: 20160115
  22. PROCTOZONE-H [Concomitant]
     Dosage: 1 DF, BID
     Route: 054
  23. NULYTELY [Concomitant]
     Active Substance: POLYETHYLENE GLYCOL 3350\POTASSIUM CHLORIDE\SODIUM BICARBONATE\SODIUM CHLORIDE
     Dosage: 30 ML, AS DIRECTED; DRINK HALF GALLON AT NIGHT AND IN MORNING
     Route: 048
     Dates: start: 20160830
  24. CITRATE OF MAGNESIUM [Concomitant]
     Active Substance: MAGNESIUM CITRATE
     Dosage: 300 ML, DRINK WHOLE BOTTLE AT BEDTIME
     Route: 048
     Dates: start: 20160830

REACTIONS (5)
  - Rectal tenesmus [Unknown]
  - Haematochezia [Unknown]
  - Haemorrhoids [Unknown]
  - Drug ineffective [Unknown]
  - Constipation [Unknown]

NARRATIVE: CASE EVENT DATE: 20170203
